FAERS Safety Report 7580708-X (Version None)
Quarter: 2011Q2

REPORT INFORMATION
  Report Type: 
  Country: None (occurrence: None)
  Receive Date: 20110620
  Receipt Date: 20110615
  Transmission Date: 20111010
  Serious: Yes (Death, Hospitalization)
  Sender: FDA-Public Use
  Company Number: 2011028547

PATIENT
  Sex: Female

DRUGS (5)
  1. ATIVAN [Concomitant]
  2. MOTRIN [Concomitant]
  3. CHILD ASPIRIN (ACETYLSALICYLIC [Concomitant]
  4. ZEMAIRA [Suspect]
     Indication: ALPHA-1 ANTI-TRYPSIN DEFICIENCY
     Dosage: (60 MG/KG  1X/WEEK INTRAVENOUS (NOT OTHERWISE SPECIFIED))
     Route: 042
     Dates: start: 20110214
  5. SPIRIVA [Concomitant]

REACTIONS (4)
  - RENAL FAILURE ACUTE [None]
  - PNEUMONIA [None]
  - SEPSIS [None]
  - HEPATIC FAILURE [None]
